FAERS Safety Report 6822135-6 (Version None)
Quarter: 2010Q3

REPORT INFORMATION
  Report Type: 
  Country: None (occurrence: None)
  Receive Date: 20100706
  Receipt Date: 20100706
  Transmission Date: 20110219
  Serious: Yes (Hospitalization)
  Sender: FDA-Public Use
  Company Number: None

PATIENT
  Sex: Male
  Weight: 102.2 kg

DRUGS (2)
  1. SAMARIUM SM 153 LEXIDRONAN (QUADRAMET) [Suspect]
     Dosage: 103 MCCI
  2. ZOMETA [Suspect]
     Dosage: 4 MG

REACTIONS (2)
  - BLOOD TEST ABNORMAL [None]
  - RECTAL HAEMORRHAGE [None]
